FAERS Safety Report 5228826-5 (Version None)
Quarter: 2007Q1

REPORT INFORMATION
  Report Type: 
  Country: None (occurrence: None)
  Receive Date: 20070131
  Receipt Date: 20070117
  Transmission Date: 20070707
  Serious: Yes (Disabling, Other)
  Sender: FDA-Public Use
  Company Number: 8021373

PATIENT
  Age: 17 Year
  Sex: Female

DRUGS (5)
  1. KEPPRA [Suspect]
     Indication: MYOCLONIC EPILEPSY
     Dosage: 500 MG 2/D PO
     Route: 048
     Dates: start: 20061201, end: 20061201
  2. KEPPRA [Suspect]
     Indication: MYOCLONIC EPILEPSY
     Dosage: 500 MG /D PO
     Route: 048
     Dates: start: 20061201, end: 20060101
  3. WELLBUTRIN [Concomitant]
  4. SYNTHROID [Concomitant]
  5. EFFEXOR [Concomitant]

REACTIONS (2)
  - COGNITIVE DISORDER [None]
  - COORDINATION ABNORMAL [None]
